FAERS Safety Report 8813550 (Version 1)
Quarter: 2012Q4

REPORT INFORMATION
  Report Type: 
  Country: US (occurrence: US)
  Receive Date: 20120927
  Receipt Date: 20120927
  Transmission Date: 20130627
  Serious: No
  Sender: FDA-Public Use
  Company Number: US-AMGEN-USASP2012053588

PATIENT
  Age: 69 Year
  Sex: Female

DRUGS (14)
  1. PROLIA [Suspect]
     Indication: OSTEOPOROSIS POSTMENOPAUSAL
     Dosage: 60 mg, q6mo
     Route: 058
     Dates: start: 20110214
  2. PROLIA [Suspect]
     Indication: OSTEOPENIA
  3. PROLIA [Suspect]
     Indication: BONE DISORDER
  4. GLUCOCORTICOIDS [Concomitant]
     Dosage: UNK
  5. XYZAL [Concomitant]
     Indication: RHINITIS ALLERGIC
     Dosage: 5 mg, qd
  6. SPIRONOLACTONE [Concomitant]
     Indication: OEDEMA
     Dosage: 25 mg, bid
     Dates: end: 20120214
  7. SPIRONOLACTONE [Concomitant]
     Indication: MENOPAUSAL SYMPTOMS
  8. ESTRADIOL [Concomitant]
     Indication: OSTEOPOROSIS POSTMENOPAUSAL
     Dosage: 0.5 mg, 2 times/wk
     Dates: end: 20120214
  9. VITAMIN D /00107901/ [Concomitant]
     Dosage: 1000 IU, qwk
  10. ASA [Concomitant]
     Dosage: 81 mg, qd
  11. CALCIUM +D                         /07511201/ [Concomitant]
  12. CENTRUM                            /02217401/ [Concomitant]
  13. ZOLOFT [Concomitant]
     Dosage: 25 mg, qd
  14. CALCIUM [Concomitant]
     Dosage: 500 mg, UNK

REACTIONS (2)
  - Tooth crowding [Unknown]
  - Malocclusion [Unknown]
